FAERS Safety Report 5196961-6 (Version None)
Quarter: 2006Q4

REPORT INFORMATION
  Report Type: 
  Country: None (occurrence: None)
  Receive Date: 20061227
  Receipt Date: 20061215
  Transmission Date: 20070319
  Serious: Yes (Other)
  Sender: FDA-Public Use
  Company Number: 2006154510

PATIENT
  Sex: Female

DRUGS (8)
  1. CELEBREX [Suspect]
     Indication: OSTEOARTHRITIS
     Dosage: 200 MG, 1 IN 1 D
     Dates: start: 20061205
  2. COTAREG (HYDROCHLOROTHIAZIDE, VALSARTAN) [Concomitant]
  3. SPIRONOLACTONE [Concomitant]
  4. BENFLUOREX (BENFLUOREX) [Concomitant]
  5. ATORVASTATIN CALCIUM [Concomitant]
  6. PAROXETINE [Concomitant]
  7. TRAMADOL HCL [Concomitant]
  8. COSOPT [Concomitant]

REACTIONS (1)
  - VISUAL DISTURBANCE [None]
